FAERS Safety Report 4392673-7 (Version None)
Quarter: 2004Q3

REPORT INFORMATION
  Report Type: 
  Country: None (occurrence: None)
  Receive Date: 20040702
  Receipt Date: 20040617
  Transmission Date: 20050211
  Serious: Yes (Hospitalization)
  Sender: FDA-Public Use
  Company Number: 430001L04DEU

PATIENT
  Age: 30 Year
  Sex: Male

DRUGS (1)
  1. NOVANTRONE [Suspect]
     Dosage: 1 IN 2 MONTHS, INTRAVENOUS
     Route: 042
     Dates: start: 19910101, end: 19931201

REACTIONS (9)
  - CARDIAC FAILURE [None]
  - CARDIOMYOPATHY [None]
  - DRUG TOXICITY [None]
  - HEART TRANSPLANT [None]
  - HEPATIC CONGESTION [None]
  - JAUNDICE [None]
  - MITRAL VALVE INCOMPETENCE [None]
  - RENAL FAILURE [None]
  - TRICUSPID VALVE INCOMPETENCE [None]
